FAERS Safety Report 24678098 (Version 2)
Quarter: 2025Q1

REPORT INFORMATION
  Report Type: Spontaneous
  Country: BR (occurrence: BR)
  Receive Date: 20241129
  Receipt Date: 20250106
  Transmission Date: 20250408
  Serious: No
  Sender: TOLMAR
  Company Number: BR-TOLMAR, INC.-24BR053870

PATIENT

DRUGS (2)
  1. ELIGARD [Suspect]
     Active Substance: LEUPROLIDE ACETATE
     Indication: Product used for unknown indication
  2. ELIGARD [Suspect]
     Active Substance: LEUPROLIDE ACETATE
     Indication: Product used for unknown indication

REACTIONS (2)
  - Intercepted product preparation error [Unknown]
  - Syringe issue [Unknown]
